FAERS Safety Report 24693092 (Version 1)
Quarter: 2024Q4

REPORT INFORMATION
  Report Type: Spontaneous
  Country: US (occurrence: US)
  Receive Date: 20241203
  Receipt Date: 20241203
  Transmission Date: 20250114
  Serious: No
  Sender: INCYTE
  Company Number: US-002147023-NVSC2024US222291

PATIENT

DRUGS (2)
  1. JAKAFI [Suspect]
     Active Substance: RUXOLITINIB
     Indication: Rosacea
     Dosage: UNK UNK, BID (CREAM)
     Route: 065
  2. SARECYCLINE [Concomitant]
     Active Substance: SARECYCLINE
     Indication: Rosacea
     Dosage: UNK
     Route: 065

REACTIONS (1)
  - Drug ineffective for unapproved indication [Unknown]
